FAERS Safety Report 6151032-7 (Version None)
Quarter: 2009Q2

REPORT INFORMATION
  Report Type: 
  Country: None (occurrence: None)
  Receive Date: 20090410
  Receipt Date: 20090327
  Transmission Date: 20091009
  Serious: No
  Sender: FDA-Public Use
  Company Number: A0771860A

PATIENT
  Age: 63 Year
  Sex: Female

DRUGS (9)
  1. TYKERB [Suspect]
     Indication: BREAST CANCER
     Dosage: 5TAB PER DAY
     Route: 048
     Dates: start: 20090226
  2. XELODA [Suspect]
     Dosage: 500MG SEE DOSAGE TEXT
     Route: 048
     Dates: start: 20090226
  3. ALLEGRA [Concomitant]
  4. LIPITOR [Concomitant]
  5. PERCOCET [Concomitant]
  6. XANAX [Concomitant]
  7. COUMADIN [Concomitant]
  8. METOPROLOL TARTRATE [Concomitant]
  9. AMYTAL [Concomitant]

REACTIONS (4)
  - FATIGUE [None]
  - NAUSEA [None]
  - RASH [None]
  - VOMITING [None]
